FAERS Safety Report 25623231 (Version 1)
Quarter: 2025Q3

REPORT INFORMATION
  Report Type: Spontaneous
  Country: US (occurrence: US)
  Receive Date: 20250730
  Receipt Date: 20250730
  Transmission Date: 20251021
  Serious: Yes (Death)
  Sender: FRESENIUS KABI
  Company Number: US-FreseniusKabi-FK202510391

PATIENT

DRUGS (1)
  1. FENTANYL [Suspect]
     Active Substance: FENTANYL
     Indication: Product used for unknown indication

REACTIONS (3)
  - Device programming error [Fatal]
  - Drug monitoring procedure not performed [Fatal]
  - Incorrect dose administered [Fatal]
